FAERS Safety Report 17760132 (Version 1)
Quarter: 2020Q2

REPORT INFORMATION
  Report Type: Spontaneous
  Country: FR (occurrence: FR)
  Receive Date: 20200508
  Receipt Date: 20200508
  Transmission Date: 20200714
  Serious: Yes (Other)
  Sender: FDA-Public Use
  Company Number: FR-ACCORD-181116

PATIENT
  Age: 35 Year
  Sex: Male

DRUGS (2)
  1. ARIPIPRAZOLE. [Suspect]
     Active Substance: ARIPIPRAZOLE
     Indication: PSYCHIATRIC SYMPTOM
     Route: 048
     Dates: start: 20200224, end: 20200224
  2. CYAMEMAZINE/CYAMEMAZINE TARTRATE [Interacting]
     Active Substance: CYAMEMAZINE
     Indication: PSYCHIATRIC SYMPTOM
     Route: 048
     Dates: start: 20200224, end: 20200228

REACTIONS (2)
  - Drug interaction [Unknown]
  - Extrapyramidal disorder [Recovered/Resolved]

NARRATIVE: CASE EVENT DATE: 20200224
